FAERS Safety Report 6692039-0 (Version None)
Quarter: 2010Q2

REPORT INFORMATION
  Report Type: 
  Country: None (occurrence: None)
  Receive Date: 20100422
  Receipt Date: 20100413
  Transmission Date: 20101027
  Serious: Yes (Other)
  Sender: FDA-Public Use
  Company Number: DE-JNJFOC-20100304596

PATIENT
  Sex: Female

DRUGS (2)
  1. STELARA [Suspect]
     Indication: DRUG USE FOR UNKNOWN INDICATION
     Route: 058
  2. PARACETAMOL [Concomitant]
     Route: 065

REACTIONS (2)
  - HEPATIC CIRRHOSIS [None]
  - HEPATIC ENZYME INCREASED [None]
